FAERS Safety Report 9635919 (Version 3)
Quarter: 2014Q3

REPORT INFORMATION
  Report Type: Spontaneous
  Country: US (occurrence: US)
  Receive Date: 20131021
  Receipt Date: 20140710
  Transmission Date: 20150326
  Serious: No
  Sender: FDA-Public Use
  Company Number: US-PURDUE-USA-2013-0102951

PATIENT
  Age: 63 Year
  Sex: Female

DRUGS (6)
  1. LIDODERM [Concomitant]
     Active Substance: LIDOCAINE
     Indication: ANALGESIC THERAPY
     Dosage: 3 5% PATCHES, PRN
     Route: 062
     Dates: start: 201302
  2. BUTRANS [Suspect]
     Active Substance: BUPRENORPHINE
     Dosage: 10 MCG/HR, 1/WEEK
     Route: 062
     Dates: start: 20130522
  3. BUTRANS [Suspect]
     Active Substance: BUPRENORPHINE
     Indication: PAIN
     Dosage: 20 MCG/HR, WEEKLY
     Route: 062
     Dates: start: 201310, end: 20131101
  4. VICODIN [Concomitant]
     Active Substance: ACETAMINOPHEN\HYDROCODONE BITARTRATE
     Indication: BREAKTHROUGH PAIN
     Dosage: 10/325 MG, PRN
     Route: 048
  5. NORCO [Concomitant]
     Active Substance: ACETAMINOPHEN\HYDROCODONE BITARTRATE
     Indication: BREAKTHROUGH PAIN
     Dosage: 10 MG, TID AS NEEDED
     Route: 048
  6. NEURONTIN [Concomitant]
     Active Substance: GABAPENTIN
     Indication: NEURALGIA
     Dosage: 300 MG, QID
     Route: 048
     Dates: start: 2011

REACTIONS (11)
  - Skin erosion [Unknown]
  - Application site pruritus [Not Recovered/Not Resolved]
  - Abnormal sensation in eye [Not Recovered/Not Resolved]
  - Product adhesion issue [Unknown]
  - Pain [Not Recovered/Not Resolved]
  - Drug ineffective [Not Recovered/Not Resolved]
  - Cold sweat [Unknown]
  - Feeling drunk [Not Recovered/Not Resolved]
  - Dizziness [Not Recovered/Not Resolved]
  - Dyspnoea [Not Recovered/Not Resolved]
  - Application site erythema [Not Recovered/Not Resolved]

NARRATIVE: CASE EVENT DATE: 20130529
